FAERS Safety Report 10154189 (Version 1)
Quarter: 2014Q2

REPORT INFORMATION
  Report Type: Spontaneous
  Country: US (occurrence: US)
  Receive Date: 20140506
  Receipt Date: 20140506
  Transmission Date: 20141212
  Serious: No
  Sender: FDA-Public Use
  Company Number: US-PFIZER INC-2014120744

PATIENT
  Age: 52 Year
  Sex: Male
  Weight: 99.77 kg

DRUGS (4)
  1. SILDENAFIL CITRATE [Suspect]
     Indication: ERECTILE DYSFUNCTION
     Dosage: 10 MG, AS NEEDED
     Dates: start: 201401, end: 2014
  2. ALEVE [Concomitant]
     Dosage: 220 MG, 2X/DAY
  3. NORCO [Concomitant]
     Dosage: (HYDROCODONE BITARTRATE) 5MG/(PARACETAMOL)325 MG, UNK
  4. VITAMIN [Concomitant]

REACTIONS (1)
  - Drug ineffective [Unknown]
